FAERS Safety Report 7554458-X (Version None)
Quarter: 2011Q2

REPORT INFORMATION
  Report Type: 
  Country: None (occurrence: None)
  Receive Date: 20110617
  Receipt Date: 20110606
  Transmission Date: 20111010
  Serious: Yes (Death)
  Sender: FDA-Public Use
  Company Number: A0926234A

PATIENT
  Age: 70 Year
  Sex: Female

DRUGS (9)
  1. LISINOPRIL [Concomitant]
  2. CALCIUM CARBONATE [Concomitant]
  3. PROMACTA [Suspect]
     Indication: IDIOPATHIC THROMBOCYTOPENIC PURPURA
     Dosage: 50MG PER DAY
     Dates: start: 20090604, end: 20100718
  4. TRAMADOL HCL [Concomitant]
  5. AMLODIPINE [Concomitant]
  6. HYDRALAZINE HCL [Concomitant]
  7. COLACE [Concomitant]
  8. PRAVASTATIN [Concomitant]
  9. CLONIDINE [Concomitant]

REACTIONS (15)
  - CONDITION AGGRAVATED [None]
  - CEREBROVASCULAR ACCIDENT [None]
  - RENAL FAILURE ACUTE [None]
  - AUTOIMMUNE THROMBOCYTOPENIA [None]
  - HYPOTENSION [None]
  - ATRIAL FIBRILLATION [None]
  - PROCTALGIA [None]
  - RESPIRATORY DISTRESS [None]
  - SEPSIS [None]
  - URINARY TRACT INFECTION [None]
  - ASTHENIA [None]
  - THROMBOCYTOPENIA [None]
  - SUPRAVENTRICULAR TACHYCARDIA [None]
  - HYPERKALAEMIA [None]
  - TOXICITY TO VARIOUS AGENTS [None]
